FAERS Safety Report 11414896 (Version 1)
Quarter: 2015Q3

REPORT INFORMATION
  Report Type: Spontaneous
  Country: JP (occurrence: None)
  Receive Date: 20150821
  Receipt Date: 20150821
  Transmission Date: 20151125
  Serious: Yes (Hospitalization, Other)
  Sender: FDA-Public Use
  Company Number: 2015-001624

PATIENT
  Age: 72 Year
  Sex: Female

DRUGS (2)
  1. ZOMETA [Suspect]
     Active Substance: ZOLEDRONIC ACID
     Route: 042
     Dates: start: 200404
  2. BENET [Suspect]
     Active Substance: RISEDRONATE SODIUM
     Indication: METASTASES TO BONE
     Route: 048
     Dates: start: 200911, end: 201102

REACTIONS (15)
  - Mouth swelling [None]
  - Oral mucosal hypertrophy [None]
  - Pain [None]
  - Oral submucosal fibrosis [None]
  - Actinomycosis [None]
  - Osteomyelitis [None]
  - Exposed bone in jaw [None]
  - Inflammation [None]
  - Dental fistula [None]
  - Osteolysis [None]
  - Gingival swelling [None]
  - Excessive granulation tissue [None]
  - Sinusitis [None]
  - Loose tooth [None]
  - Purulent discharge [None]

NARRATIVE: CASE EVENT DATE: 201101
